FAERS Safety Report 8494159-7 (Version None)
Quarter: 2012Q3

REPORT INFORMATION
  Report Type: 
  Country: None (occurrence: None)
  Receive Date: 20120709
  Receipt Date: 20120702
  Transmission Date: 20120928
  Serious: Yes (Other)
  Sender: FDA-Public Use
  Company Number: PHHY2012JP050891

PATIENT
  Age: 78 Year
  Sex: Female

DRUGS (2)
  1. EC DOPARL [Concomitant]
     Dosage: 5 DF, UNK
     Route: 048
  2. COMTAN [Suspect]
     Indication: PARKINSON'S DISEASE
     Dosage: 2 DF, DAILY (ADMINISTERED VIA TUBE)
     Route: 048

REACTIONS (2)
  - DYSPHAGIA [None]
  - WRONG TECHNIQUE IN DRUG USAGE PROCESS [None]
